FAERS Safety Report 17538181 (Version 1)
Quarter: 2020Q1

REPORT INFORMATION
  Report Type: Spontaneous
  Country: CN (occurrence: CN)
  Receive Date: 20200313
  Receipt Date: 20200313
  Transmission Date: 20200409
  Serious: Yes (Hospitalization, Other)
  Sender: FDA-Public Use
  Company Number: CN-CHEPLA-20200930_01

PATIENT
  Age: 40 Year
  Sex: Male

DRUGS (11)
  1. PREDNISONE. [Suspect]
     Active Substance: PREDNISONE
     Indication: PROPHYLAXIS AGAINST TRANSPLANT REJECTION
     Route: 048
  2. METHYLPREDNISOLONE. [Concomitant]
     Active Substance: METHYLPREDNISOLONE
     Route: 065
     Dates: start: 20200121
  3. TAZOBACTAM SODIUM [Concomitant]
     Active Substance: TAZOBACTAM SODIUM
     Indication: INFECTION PROPHYLAXIS
     Dosage: INJECTION
     Route: 065
  4. GANCICLOVIR. [Suspect]
     Active Substance: GANCICLOVIR
     Indication: INFECTION PROPHYLAXIS
     Route: 065
  5. MYCOPHENOLATE MOFETIL. [Suspect]
     Active Substance: MYCOPHENOLATE MOFETIL
     Indication: PROPHYLAXIS AGAINST TRANSPLANT REJECTION
     Route: 065
     Dates: start: 201903, end: 20200120
  6. TACROLIMUS. [Suspect]
     Active Substance: TACROLIMUS
     Indication: PROPHYLAXIS AGAINST TRANSPLANT REJECTION
     Route: 065
     Dates: start: 201903, end: 20200120
  7. POSACONAZOLE [Concomitant]
     Active Substance: POSACONAZOLE
     Indication: INFECTION PROPHYLAXIS
     Route: 065
  8. CEFOPERAZONE SODIUM [Concomitant]
     Active Substance: CEFOPERAZONE SODIUM
     Indication: INFECTION PROPHYLAXIS
     Dosage: INJECTION
     Route: 065
  9. METHYLPREDNISOLONE. [Concomitant]
     Active Substance: METHYLPREDNISOLONE
     Route: 041
     Dates: start: 20200124
  10. OSELTAMIVIR [Concomitant]
     Active Substance: OSELTAMIVIR
     Indication: INFECTION PROPHYLAXIS
     Route: 065
  11. MOXIFLOXACIN HYDROCHLORIDE. [Concomitant]
     Active Substance: MOXIFLOXACIN HYDROCHLORIDE
     Indication: INFECTION PROPHYLAXIS
     Dosage: 0.4 G/D, ONCE PER DAY, THREE TIMES A DAY
     Route: 065

REACTIONS (2)
  - Intentional product use issue [Unknown]
  - Pneumonia [Recovered/Resolved]
